FAERS Safety Report 7007591-5 (Version None)
Quarter: 2010Q3

REPORT INFORMATION
  Report Type: 
  Country: None (occurrence: None)
  Receive Date: 20100917
  Receipt Date: 20100915
  Transmission Date: 20110219
  Serious: Yes (Life-Threatening, Hospitalization)
  Sender: FDA-Public Use
  Company Number: 2010SP043647

PATIENT
  Age: 75 Year
  Sex: Female
  Weight: 43 kg

DRUGS (4)
  1. REMERON [Suspect]
     Indication: DEPRESSION
     Dosage: 30 MG;PO
     Route: 048
     Dates: start: 20071001, end: 20100616
  2. ASPIRIN [Suspect]
     Indication: PERIPHERAL VASCULAR DISORDER
     Dosage: 100 MG;QD;PO
     Route: 048
     Dates: start: 20071001, end: 20100616
  3. ENALAPRIL MALEATE [Suspect]
     Indication: ESSENTIAL HYPERTENSION
     Dosage: 10 MG;QD;PO
     Route: 048
  4. ZOLPIDEM [Concomitant]

REACTIONS (6)
  - DUODENAL ULCER PERFORATION [None]
  - HAEMORRHAGIC ANAEMIA [None]
  - PERIPHERAL ISCHAEMIA [None]
  - POST PROCEDURAL COMPLICATION [None]
  - SHOCK HAEMORRHAGIC [None]
  - WEIGHT DECREASED [None]
